FAERS Safety Report 15906025 (Version 2)
Quarter: 2019Q1

REPORT INFORMATION
  Report Type: Report from Study
  Country: GB (occurrence: GB)
  Receive Date: 20190204
  Receipt Date: 20190311
  Transmission Date: 20190417
  Serious: Yes (Other)
  Sender: FDA-Public Use
  Company Number: GB-JNJFOC-20181225844

PATIENT
  Age: 58 Year
  Sex: Male

DRUGS (4)
  1. CO-AMOXICLAV [Concomitant]
     Active Substance: AMOXICILLIN\CLAVULANATE POTASSIUM
     Route: 065
  2. IMUVAC [Concomitant]
     Active Substance: INFLUENZA A VIRUS A/CALIFORNIA/7/2009(H1N1)-LIKE ANTIGEN (PROPIOLACTONE INACTIVATED)
     Route: 065
  3. STELARA [Suspect]
     Active Substance: USTEKINUMAB
     Indication: PSORIASIS
     Route: 058
     Dates: start: 20151230
  4. ENSTILAR [Concomitant]
     Active Substance: BETAMETHASONE DIPROPIONATE\CALCIPOTRIENE HYDRATE
     Dosage: APPLY ONCE A DAY TO THE AFFECTED AREAS
     Route: 065

REACTIONS (7)
  - Lower respiratory tract infection [Recovered/Resolved]
  - Musculoskeletal pain [Unknown]
  - Influenza [Recovered/Resolved]
  - Blood immunoglobulin M decreased [Unknown]
  - Product dose omission [Unknown]
  - Upper-airway cough syndrome [Recovered/Resolved]
  - Pneumonia [Recovered/Resolved]

NARRATIVE: CASE EVENT DATE: 201811
